FAERS Safety Report 10168713 (Version 2)
Quarter: 2014Q3

REPORT INFORMATION
  Report Type: Spontaneous
  Country: FR (occurrence: None)
  Receive Date: 20140509
  Receipt Date: 20140715
  Transmission Date: 20150326
  Serious: Yes (Hospitalization)
  Sender: FDA-Public Use
  Company Number: 2014MPI00488

PATIENT
  Age: 62 Year
  Sex: Female

DRUGS (5)
  1. KARDEGIC [Suspect]
     Active Substance: ASPIRIN LYSINE
     Route: 048
  2. LASILIX (FUROSEMIDE) [Concomitant]
     Active Substance: FUROSEMIDE
  3. COVERSYL (PERINDOPRIL ERBUMINE) [Concomitant]
     Active Substance: PERINDOPRIL
  4. ALDACTONE (POTASSIUM CANRENOATE) [Concomitant]
  5. BRENTUXIMAB VEDOTIN [Suspect]
     Active Substance: BRENTUXIMAB VEDOTIN
     Indication: T-CELL LYMPHOMA
     Dosage: 50 MG, UNK, INTRAVENOUS
     Route: 042
     Dates: start: 20140114, end: 20140204

REACTIONS (2)
  - Rash [None]
  - Lichenoid keratosis [None]

NARRATIVE: CASE EVENT DATE: 20140218
